FAERS Safety Report 21860969 (Version 3)
Quarter: 2023Q1

REPORT INFORMATION
  Report Type: Report from Study
  Country: US (occurrence: None)
  Receive Date: 20230113
  Receipt Date: 20230228
  Transmission Date: 20230418
  Serious: Yes (Hospitalization)
  Sender: FDA-Public Use
  Company Number: US-Eisai Medical Research-EC-2023-131673

PATIENT
  Age: 60 Year
  Sex: Female
  Weight: 106.6 kg

DRUGS (13)
  1. LENVATINIB [Suspect]
     Active Substance: LENVATINIB
     Indication: Clear cell renal cell carcinoma
     Route: 048
     Dates: start: 20221110, end: 20221128
  2. LENVATINIB [Suspect]
     Active Substance: LENVATINIB
     Route: 048
     Dates: start: 20221201, end: 20221220
  3. LENVATINIB [Suspect]
     Active Substance: LENVATINIB
     Route: 048
     Dates: start: 20230105
  4. BELZUTIFAN [Suspect]
     Active Substance: BELZUTIFAN
     Indication: Clear cell renal cell carcinoma
     Route: 048
     Dates: start: 20221110, end: 20221128
  5. BELZUTIFAN [Suspect]
     Active Substance: BELZUTIFAN
     Dosage: STARTING DOSE AT 120 MG; FLUCTUATED DOSAGE
     Route: 048
     Dates: start: 20221201, end: 20221221
  6. LEVOTHYROXINE SODIUM [Concomitant]
     Active Substance: LEVOTHYROXINE SODIUM
     Dates: start: 20221114
  7. LORAZEPAM [Concomitant]
     Active Substance: LORAZEPAM
     Dates: start: 20221027
  8. CHOLECALCIFEROL [Concomitant]
     Active Substance: CHOLECALCIFEROL
     Dates: start: 20220928
  9. UREACIN [Concomitant]
     Dates: start: 20200814
  10. TRIAMCINOLONE [Concomitant]
     Active Substance: TRIAMCINOLONE
     Dates: start: 20210308
  11. VESICARE [Concomitant]
     Active Substance: SOLIFENACIN SUCCINATE
     Dates: start: 20200117
  12. MINERALS\VITAMINS [Concomitant]
     Active Substance: MINERALS\VITAMINS
     Dates: start: 20191009
  13. BIOTIN [Concomitant]
     Active Substance: BIOTIN
     Dates: start: 20191009

REACTIONS (3)
  - Cardiac failure [Not Recovered/Not Resolved]
  - Anaemia [Not Recovered/Not Resolved]
  - Platelet count decreased [Recovered/Resolved]

NARRATIVE: CASE EVENT DATE: 20221122
